FAERS Safety Report 22811283 (Version 6)
Quarter: 2023Q4

REPORT INFORMATION
  Report Type: Report from Study
  Country: TW (occurrence: TW)
  Receive Date: 20230810
  Receipt Date: 20231002
  Transmission Date: 20240110
  Serious: Yes (Hospitalization)
  Sender: FDA-Public Use
  Company Number: TW-JNJFOC-20230729025

PATIENT
  Age: 69 Year
  Sex: Male
  Weight: 56.4 kg

DRUGS (55)
  1. AMIVANTAMAB [Suspect]
     Active Substance: AMIVANTAMAB
     Indication: Non-small cell lung cancer
     Dosage: 7 ML VIAL?MOST RECENT DOSE WAS ON 17/JUL/2023
     Route: 042
     Dates: start: 20230619, end: 20230710
  2. STRESSTABS [VITAMINS NOS] [Concomitant]
     Indication: Prophylaxis
     Route: 048
  3. ACETAL [PARACETAMOL] [Concomitant]
     Indication: Pain in extremity
     Route: 048
     Dates: start: 20230731, end: 20230802
  4. MORPHINE SULFATE [Concomitant]
     Active Substance: MORPHINE SULFATE
     Indication: Pain in extremity
     Route: 048
     Dates: start: 20230727, end: 20230728
  5. ENOXAPARIN SODIUM [Concomitant]
     Active Substance: ENOXAPARIN SODIUM
     Indication: Embolism venous
     Route: 058
     Dates: start: 20230727, end: 20230808
  6. TAMSULOSIN HYDROCHLORIDE [Concomitant]
     Active Substance: TAMSULOSIN HYDROCHLORIDE
     Indication: Benign prostatic hyperplasia
     Route: 048
     Dates: start: 20181228
  7. TAMSULOSIN HYDROCHLORIDE [Concomitant]
     Active Substance: TAMSULOSIN HYDROCHLORIDE
     Route: 048
     Dates: start: 20181228, end: 20230815
  8. KASCOAL [Concomitant]
     Indication: Abdominal distension
     Route: 048
     Dates: start: 20200606, end: 20230726
  9. KASCOAL [Concomitant]
     Indication: Capillary leak syndrome
     Route: 048
     Dates: start: 20230727
  10. AVODART [Concomitant]
     Active Substance: DUTASTERIDE
     Indication: Benign prostatic hyperplasia
     Route: 048
     Dates: start: 20210108, end: 20230802
  11. AVODART [Concomitant]
     Active Substance: DUTASTERIDE
     Route: 048
     Dates: start: 20230814
  12. METOCLOPRAMIDE HYDROCHLORIDE [Concomitant]
     Active Substance: METOCLOPRAMIDE HYDROCHLORIDE
     Indication: Ileus
     Route: 048
     Dates: start: 20230130, end: 20230726
  13. METOCLOPRAMIDE HYDROCHLORIDE [Concomitant]
     Active Substance: METOCLOPRAMIDE HYDROCHLORIDE
     Indication: Nausea
     Route: 048
     Dates: start: 20230814, end: 20230820
  14. METOCLOPRAMIDE HYDROCHLORIDE [Concomitant]
     Active Substance: METOCLOPRAMIDE HYDROCHLORIDE
     Indication: Prophylaxis of nausea and vomiting
  15. METOCLOPRAMIDE HYDROCHLORIDE [Concomitant]
     Active Substance: METOCLOPRAMIDE HYDROCHLORIDE
     Indication: Abdominal distension
  16. SENNAPUR [Concomitant]
     Indication: Abdominal distension
     Route: 048
     Dates: start: 20230525
  17. BENAZON [Concomitant]
     Indication: Haemorrhoids
     Route: 061
     Dates: start: 20230626, end: 20230703
  18. BENAZON [Concomitant]
     Dosage: 1
     Route: 061
     Dates: start: 20230626
  19. EDOXABAN TOSYLATE [Concomitant]
     Active Substance: EDOXABAN TOSYLATE
     Indication: Prophylaxis
     Route: 048
     Dates: start: 20230702, end: 20230714
  20. STRESSTAB [ASCORBIC ACID;BIOTIN;CALCIUM PANTOTHENATE;CYANOCOBALAMIN;FO [Concomitant]
     Indication: Chemotherapy side effect prophylaxis
     Route: 048
     Dates: end: 20230726
  21. DIPHENHYDRAMINE [Concomitant]
     Active Substance: DIPHENHYDRAMINE
     Indication: Prophylaxis
     Route: 042
     Dates: start: 20230717, end: 20230717
  22. DIPHENHYDRAMINE [Concomitant]
     Active Substance: DIPHENHYDRAMINE
     Route: 042
     Dates: start: 20230811, end: 20230811
  23. FUROSEMIDE [Concomitant]
     Active Substance: FUROSEMIDE
     Indication: Oedema peripheral
     Route: 042
     Dates: start: 20230717, end: 20230718
  24. FUROSEMIDE [Concomitant]
     Active Substance: FUROSEMIDE
     Indication: Capillary leak syndrome
     Route: 042
     Dates: start: 20230728, end: 20230730
  25. MEGESTROL ACETATE [Concomitant]
     Active Substance: MEGESTROL ACETATE
     Indication: Increased appetite
     Route: 048
     Dates: start: 20230710, end: 20230802
  26. BUTYLSCOPOLAMINE BROMIDE [Concomitant]
     Active Substance: BUTYLSCOPOLAMINE BROMIDE
     Indication: Haemorrhoids
     Route: 048
     Dates: start: 20230713, end: 20230726
  27. FAKTU [Concomitant]
     Indication: Haemorrhoids
     Route: 054
     Dates: start: 20220713, end: 20230726
  28. IMOLEX [Concomitant]
     Indication: Haemorrhoids
     Route: 048
     Dates: start: 20230713, end: 20230726
  29. LASIX [Concomitant]
     Active Substance: FUROSEMIDE
     Indication: Oedema peripheral
     Route: 048
     Dates: start: 20230710, end: 20230711
  30. TETRACYCLINE [Concomitant]
     Active Substance: TETRACYCLINE
     Indication: Paronychia
     Dosage: ^1^ DOSAGE; DOSE UNIT NOT PROVIDED
     Route: 061
     Dates: start: 20230726, end: 20230815
  31. ACETEINE [Concomitant]
     Indication: Prophylaxis
     Route: 048
     Dates: start: 20230729, end: 20230802
  32. CONST-K [Concomitant]
     Indication: Prophylaxis
     Route: 048
     Dates: start: 20230731
  33. METHACIN [INDOMETACIN] [Concomitant]
     Indication: Back pain
     Dosage: 1 (DOSING UNIT NOT PROVIDED)
     Route: 061
     Dates: start: 20230731, end: 20230802
  34. SULFAMETHOXAZOLE\TRIMETHOPRIM [Concomitant]
     Active Substance: SULFAMETHOXAZOLE\TRIMETHOPRIM
     Indication: Prophylaxis
     Route: 048
     Dates: start: 20230801, end: 20230815
  35. SULFAMETHOXAZOLE\TRIMETHOPRIM [Concomitant]
     Active Substance: SULFAMETHOXAZOLE\TRIMETHOPRIM
     Route: 048
     Dates: start: 20230815, end: 20230820
  36. NYSTATIN [Concomitant]
     Active Substance: NYSTATIN
     Indication: Stomatitis
     Route: 048
     Dates: start: 20230801, end: 20230811
  37. NYSTATIN [Concomitant]
     Active Substance: NYSTATIN
     Indication: Mucositis management
     Route: 048
     Dates: start: 20230815, end: 20230820
  38. MAGNESIUM SULFATE [Concomitant]
     Active Substance: MAGNESIUM SULFATE
     Indication: Mineral supplementation
     Route: 042
     Dates: start: 20230801, end: 20230801
  39. STROCAIN [OXETACAINE] [Concomitant]
     Indication: Ileus
     Route: 048
     Dates: start: 20230801, end: 20230801
  40. STROCAIN [OXETACAINE] [Concomitant]
     Indication: Gastric haemorrhage
     Route: 048
     Dates: start: 20230813, end: 20230813
  41. WEIMOK [Concomitant]
     Indication: Ileus
     Route: 048
     Dates: start: 20230801, end: 20230802
  42. DOXYCYCLINE [Concomitant]
     Active Substance: DOXYCYCLINE
     Indication: Dermatitis acneiform
     Route: 048
     Dates: start: 20230801, end: 20230808
  43. PRIMPERAN [Concomitant]
     Active Substance: METOCLOPRAMIDE HYDROCHLORIDE
     Indication: Ileus
     Route: 042
     Dates: start: 20230802, end: 20230814
  44. BISACODYL [Concomitant]
     Active Substance: BISACODYL
     Indication: Ileus
     Route: 054
     Dates: start: 20230802, end: 20230803
  45. BISACODYL [Concomitant]
     Active Substance: BISACODYL
     Route: 054
     Dates: start: 20230807, end: 20230808
  46. DEXTROSE AND ELECTROLYTE NO. 48 [Concomitant]
     Active Substance: DEXTROSE MONOHYDRATE\MAGNESIUM CHLORIDE\POTASSIUM CHLORIDE\POTASSIUM PHOSPHATE, MONOBASIC\SODIUM CHL
     Indication: Prophylaxis
     Route: 042
     Dates: start: 20230802, end: 20230802
  47. AMINO ACIDS NOS;GLUCOSE;GLYCINE MAX [Concomitant]
     Indication: Prophylaxis
     Route: 042
     Dates: start: 20230803, end: 20230814
  48. NEXIUM [Concomitant]
     Active Substance: ESOMEPRAZOLE MAGNESIUM
     Indication: Ileus
     Route: 048
     Dates: start: 20230803, end: 20230805
  49. NEXIUM [Concomitant]
     Active Substance: ESOMEPRAZOLE MAGNESIUM
     Indication: Gastric haemorrhage
     Route: 048
     Dates: start: 20230815, end: 20230820
  50. ESOMELONE [Concomitant]
     Indication: Gastric haemorrhage
     Route: 042
     Dates: start: 20230805, end: 20230805
  51. ESOMELONE [Concomitant]
     Route: 042
     Dates: start: 20230806, end: 20230815
  52. KCL [Concomitant]
     Active Substance: POTASSIUM CHLORIDE
     Indication: Prophylaxis
     Route: 042
     Dates: start: 20230807, end: 20230809
  53. SENNAPUR [Concomitant]
     Indication: Ileus
     Route: 048
     Dates: start: 20230807, end: 20230814
  54. UREA [Concomitant]
     Active Substance: UREA
     Indication: Skin fissures
     Dosage: 1 NO UNIT DOSE PROVIDED
     Route: 061
     Dates: start: 20230804, end: 20230821
  55. DIPHENHYDRAMINE [Concomitant]
     Active Substance: DIPHENHYDRAMINE
     Indication: Prophylaxis
     Route: 042
     Dates: start: 20230809, end: 20230809

REACTIONS (4)
  - Capillary leak syndrome [Not Recovered/Not Resolved]
  - Sepsis [Recovered/Resolved]
  - COVID-19 [Recovered/Resolved]
  - Pneumonia [Not Recovered/Not Resolved]

NARRATIVE: CASE EVENT DATE: 20230714
